FAERS Safety Report 14898806 (Version 1)
Quarter: 2018Q2

REPORT INFORMATION
  Report Type: Spontaneous
  Country: US (occurrence: US)
  Receive Date: 20180515
  Receipt Date: 20180515
  Transmission Date: 20180711
  Serious: Yes (Hospitalization, Other)
  Sender: FDA-Public Use
  Company Number: US-ROCHE-2123788

PATIENT
  Sex: Female

DRUGS (14)
  1. ABATACEPT [Concomitant]
     Active Substance: ABATACEPT
  2. XELJANZ [Concomitant]
     Active Substance: TOFACITINIB CITRATE
     Route: 065
  3. LEFLUNOMIDE. [Suspect]
     Active Substance: LEFLUNOMIDE
     Indication: RHEUMATOID ARTHRITIS
     Route: 065
  4. INFLIXIMAB [Concomitant]
     Active Substance: INFLIXIMAB
  5. METHOTREXATE. [Concomitant]
     Active Substance: METHOTREXATE
  6. GOLIMUMAB [Concomitant]
     Active Substance: GOLIMUMAB
  7. CYMBALTA [Concomitant]
     Active Substance: DULOXETINE HYDROCHLORIDE
  8. PLAQUENIL [Concomitant]
     Active Substance: HYDROXYCHLOROQUINE SULFATE
  9. CIMZIA [Concomitant]
     Active Substance: CERTOLIZUMAB PEGOL
  10. HUMIRA [Suspect]
     Active Substance: ADALIMUMAB
     Indication: RHEUMATOID ARTHRITIS
     Route: 065
  11. ACTEMRA [Suspect]
     Active Substance: TOCILIZUMAB
     Indication: PRODUCT USED FOR UNKNOWN INDICATION
     Route: 065
  12. RITUXAN [Suspect]
     Active Substance: RITUXIMAB
     Indication: RHEUMATOID ARTHRITIS
     Route: 065
  13. ENBREL [Suspect]
     Active Substance: ETANERCEPT
     Indication: RHEUMATOID ARTHRITIS
     Route: 065
  14. SULFASALAZINE. [Concomitant]
     Active Substance: SULFASALAZINE

REACTIONS (15)
  - Cellulitis [Unknown]
  - Myositis [Unknown]
  - Musculoskeletal stiffness [Unknown]
  - Arthralgia [Unknown]
  - Nausea [Unknown]
  - Diabetic ketoacidosis [Unknown]
  - Acute sinusitis [Unknown]
  - Limb injury [Not Recovered/Not Resolved]
  - Cough [Unknown]
  - Oedema peripheral [Unknown]
  - Multiple fractures [Unknown]
  - Device related sepsis [Unknown]
  - Nasal congestion [Unknown]
  - Drug ineffective [Unknown]
  - Diarrhoea [Unknown]
